FAERS Safety Report 18552154 (Version 5)
Quarter: 2022Q1

REPORT INFORMATION
  Report Type: Other
  Country: CA (occurrence: CA)
  Receive Date: 20201126
  Receipt Date: 20220318
  Transmission Date: 20220423
  Serious: Yes (Other)
  Sender: FDA-Public Use
  Company Number: CA-CELLTRION INC.-2020CA032203

PATIENT

DRUGS (13)
  1. RITUXIMAB [Suspect]
     Active Substance: RITUXIMAB
     Indication: Rheumatoid arthritis
     Dosage: 1000 MILLIGRAM
     Route: 042
  2. ACETAMINOPHEN [Concomitant]
     Active Substance: ACETAMINOPHEN
     Indication: Premedication
     Dosage: 650 MILLIGRAM, TOTAL
     Route: 048
  3. CALCIUM [Concomitant]
     Active Substance: CALCIUM
  4. DIPHENHYDRAMINE HYDROCHLORIDE [Concomitant]
     Active Substance: DIPHENHYDRAMINE HYDROCHLORIDE
     Indication: Premedication
     Dosage: 50 MILLIGRAM, TOTAL
     Route: 048
  5. LEVOTHYROXINE [Concomitant]
     Active Substance: LEVOTHYROXINE
     Dosage: 1 EVERY 1 WEEK
     Route: 065
  6. FOLIC ACID [Concomitant]
     Active Substance: FOLIC ACID
  7. HYDROXYCHLOROQUINE SULFATE [Concomitant]
     Active Substance: HYDROXYCHLOROQUINE SULFATE
  8. METHOTREXATE [Concomitant]
     Active Substance: METHOTREXATE
     Route: 037
  9. METHYLPREDNISOLONE [Concomitant]
     Active Substance: METHYLPREDNISOLONE
     Indication: Premedication
     Dosage: 100 MILLIGRAM, TOTAL
     Route: 042
  10. OMEPRAZOLE [Concomitant]
     Active Substance: OMEPRAZOLE
  11. SYNTHROID [Concomitant]
     Active Substance: LEVOTHYROXINE SODIUM
     Dosage: 0.175 MILLIGRAM, 6 EVERY 1 WEEKS
     Route: 065
  12. SYNTHROID [Concomitant]
     Active Substance: LEVOTHYROXINE SODIUM
     Dosage: 0.175 MILLIGRAM, 6 EVERY 1 WEEKS
     Route: 065
  13. DICLOFENAC [Concomitant]
     Active Substance: DICLOFENAC

REACTIONS (18)
  - Allergy to arthropod sting [Recovered/Resolved]
  - Cervical dysplasia [Recovered/Resolved]
  - Ear discomfort [Recovered/Resolved]
  - Weight decreased [Recovered/Resolved]
  - Rheumatoid arthritis [Recovered/Resolved]
  - Tooth extraction [Recovered/Resolved]
  - Gastrointestinal infection [Recovered/Resolved]
  - Headache [Recovered/Resolved]
  - Influenza [Recovered/Resolved]
  - Localised infection [Recovered/Resolved]
  - Lymphadenopathy [Recovered/Resolved]
  - Nasopharyngitis [Recovered/Resolved]
  - Nausea [Recovered/Resolved]
  - Osteomyelitis [Recovered/Resolved]
  - Papilloma viral infection [Recovered/Resolved]
  - Pain [Recovered/Resolved]
  - Tooth infection [Recovered/Resolved]
  - Infusion related reaction [Recovered/Resolved]
